FAERS Safety Report 15433960 (Version 1)
Quarter: 2018Q3

REPORT INFORMATION
  Report Type: Spontaneous
  Country: US (occurrence: US)
  Receive Date: 20180921
  Receipt Date: 20180921
  Transmission Date: 20181010
  Serious: No
  Sender: FDA-Public Use
  Company Number: None

PATIENT
  Age: 56 Year
  Sex: Female

DRUGS (1)
  1. TALTZ [Suspect]
     Active Substance: IXEKIZUMAB
     Indication: PSORIASIS
     Dosage: ?  INJECT 80MG (1 PEN) SUBCUTANEOUSLY AT WEEK 12 AS DIRECTED?
     Route: 058
     Dates: start: 201807

REACTIONS (2)
  - Cough [None]
  - Upper-airway cough syndrome [None]
